FAERS Safety Report 24911564 (Version 1)
Quarter: 2025Q1

REPORT INFORMATION
  Report Type: Report from Study
  Country: US (occurrence: US)
  Receive Date: 20250131
  Receipt Date: 20250131
  Transmission Date: 20250408
  Serious: Yes (Death, Hospitalization, Other)
  Sender: TORRENT PHARMA INC.
  Company Number: US-TORRENT-00014179

PATIENT
  Age: 18 Year
  Sex: Male

DRUGS (3)
  1. CITALOPRAM [Suspect]
     Active Substance: CITALOPRAM
     Indication: Product used for unknown indication
     Route: 048
  2. CAFFEINE [Suspect]
     Active Substance: CAFFEINE
     Indication: Product used for unknown indication
     Route: 048
  3. CLENBUTEROL [Suspect]
     Active Substance: CLENBUTEROL
     Indication: Product used for unknown indication
     Route: 048

REACTIONS (10)
  - Toxicity to various agents [Fatal]
  - Completed suicide [Fatal]
  - Hypokalaemia [Unknown]
  - Agitation [Unknown]
  - Vomiting [Unknown]
  - Mydriasis [Unknown]
  - Arrhythmia [Fatal]
  - Tachycardia [Fatal]
  - Intentional overdose [Unknown]
  - Cardiac arrest [Unknown]
